FAERS Safety Report 6669876-1 (Version None)
Quarter: 2010Q2

REPORT INFORMATION
  Report Type: 
  Country: None (occurrence: None)
  Receive Date: 20100406
  Receipt Date: 20100122
  Transmission Date: 20101027
  Serious: No
  Sender: FDA-Public Use
  Company Number: US-ALLERGAN-0911426US

PATIENT
  Age: 65 Year
  Sex: Female
  Weight: 54.422 kg

DRUGS (3)
  1. LATISSE [Suspect]
     Indication: GROWTH OF EYELASHES
     Dosage: UNK
     Route: 061
     Dates: end: 20090701
  2. LUMIGAN [Suspect]
     Indication: GROWTH OF EYELASHES
     Route: 061
  3. VITAMINS [Concomitant]
     Route: 061

REACTIONS (9)
  - ALOPECIA [None]
  - DRUG ADMINISTRATION ERROR [None]
  - EYE IRRITATION [None]
  - EYE PAIN [None]
  - EYELASH DISCOLOURATION [None]
  - FOREIGN BODY SENSATION IN EYES [None]
  - LACRIMATION INCREASED [None]
  - MADAROSIS [None]
  - SKIN HYPERPIGMENTATION [None]
